FAERS Safety Report 10713190 (Version 2)
Quarter: 2015Q1

REPORT INFORMATION
  Report Type: Spontaneous
  Country: GB (occurrence: GB)
  Receive Date: 20150115
  Receipt Date: 20150206
  Transmission Date: 20150721
  Serious: Yes (Other)
  Sender: FDA-Public Use
  Company Number: GB-TEVA-532853ISR

PATIENT
  Age: 12 Year
  Sex: Female
  Weight: 36 kg

DRUGS (14)
  1. CIPROXIN [Suspect]
     Active Substance: CIPROFLOXACIN
     Indication: INFECTIVE PULMONARY EXACERBATION OF CYSTIC FIBROSIS
     Dosage: APPROXIMATELY 360MG THREE TIMES PER DAY
     Route: 042
     Dates: start: 20141120, end: 20141201
  2. URSODEOXYCHOLIC ACID [Concomitant]
     Active Substance: URSODIOL
  3. VITAMIN E SUBSTANCES [Concomitant]
  4. DORNASE ALFA [Concomitant]
     Active Substance: DORNASE ALFA
  5. SALBUTAMOL [Concomitant]
     Active Substance: ALBUTEROL
  6. FLUCLOXACILLIN [Concomitant]
     Active Substance: FLUCLOXACILLIN
  7. MEROPENEM. [Concomitant]
     Active Substance: MEROPENEM
  8. CIPROXIN [Suspect]
     Active Substance: CIPROFLOXACIN
     Route: 048
     Dates: start: 20141120, end: 20141119
  9. CIPROFLOXACIN. [Suspect]
     Active Substance: CIPROFLOXACIN
     Indication: INFECTIVE PULMONARY EXACERBATION OF CYSTIC FIBROSIS
     Dosage: APPROXIMATELY 360MG THREE TIMES PER DAY
     Route: 042
     Dates: start: 20141120, end: 20141129
  10. AMIKACIN SULFATE. [Concomitant]
     Active Substance: AMIKACIN SULFATE
  11. CREON [Concomitant]
     Active Substance: PANCRELIPASE AMYLASE\PANCRELIPASE LIPASE\PANCRELIPASE PROTEASE
  12. OMEPRAZOLE. [Concomitant]
     Active Substance: OMEPRAZOLE
  13. SERETIDE [Concomitant]
     Active Substance: FLUTICASONE FUROATE\SALMETEROL XINAFOATE
  14. AZITHROMYCIN [Concomitant]
     Active Substance: AZITHROMYCIN ANHYDROUS

REACTIONS (1)
  - Joint swelling [Recovered/Resolved]

NARRATIVE: CASE EVENT DATE: 201411
